FAERS Safety Report 16528894 (Version 1)
Quarter: 2019Q3

REPORT INFORMATION
  Report Type: Spontaneous
  Country: NL (occurrence: NL)
  Receive Date: 20190703
  Receipt Date: 20190703
  Transmission Date: 20191004
  Serious: Yes (Other)
  Sender: FDA-Public Use
  Company Number: NL-PFIZER INC-2019277296

PATIENT
  Sex: Female
  Weight: 95 kg

DRUGS (17)
  1. OXYNORM [Concomitant]
     Active Substance: OXYCODONE HYDROCHLORIDE
     Dosage: TRIED 2 TO 3 CAPSULES PER DAY
  2. HYDROXOCOBALAMIN [Concomitant]
     Active Substance: HYDROXOCOBALAMIN
     Dosage: (UNK, QM, CONCENTRATION 500 MICROGRAMS PER ML CF)
  3. METOPROLOL SUCCINATE. [Concomitant]
     Active Substance: METOPROLOL SUCCINATE
     Indication: HYPERTENSION
     Dosage: 1 UNK, 1X/DAY
  4. PARACETAMOL [Concomitant]
     Active Substance: ACETAMINOPHEN
     Dosage: UNK, PRN
  5. ATORVASTATIN CALCIUM. [Suspect]
     Active Substance: ATORVASTATIN CALCIUM
     Dosage: UNK
  6. COZAAR [Suspect]
     Active Substance: LOSARTAN POTASSIUM
     Indication: BLOOD PRESSURE ABNORMAL
     Dosage: 50 MILLIGRAM
     Route: 048
     Dates: start: 1994
  7. MEBEVERINE [Concomitant]
     Active Substance: MEBEVERINE
     Dosage: BID, RETARD CAPSULE TAKEN FOR 40 YEARS
  8. PANTOPRAZOLE [Concomitant]
     Active Substance: PANTOPRAZOLE
     Dosage: 1 UNK, 2X/DAY
  9. OCULOTECT PVD [Concomitant]
     Dosage: (CONCENTRATION 50 MG PER ML 1XSAY TAKEN FOR 20 YERARS)
  10. LIPOSIC [Concomitant]
     Active Substance: CARBOMER
     Dosage: CONCENTRATION 2 MILLIGRAM/GRAM
  11. METOPROLOL. [Concomitant]
     Active Substance: METOPROLOL
     Dosage: 40 UNK, 2X/DAY
  12. PARACETAMOL [Concomitant]
     Active Substance: ACETAMINOPHEN
     Dosage: 4 TIMES 2 PARACETAMOL AS NEEDED
  13. NORMACOL [Concomitant]
     Active Substance: HERBALS\KARAYA GUM
     Dosage: UNK UNK, PRN
  14. COLECALCIFEROL [Concomitant]
     Active Substance: CHOLECALCIFEROL
     Dosage: UNK
  15. HYDROCHLOROTHIAZIDE. [Concomitant]
     Active Substance: HYDROCHLOROTHIAZIDE
     Dosage: 1 UNK, 1X/DAY
  16. HYDROXOCOBALAMIN [Concomitant]
     Active Substance: HYDROXOCOBALAMIN
     Dosage: UNK, Q2M, CONCENTRATION 500 MICROGRAMS PER ML CF
  17. ACETYLSALICYLIC ACID [Concomitant]
     Active Substance: ASPIRIN
     Dosage: (UNK UNK, QD, DISSOLVING TABLET)

REACTIONS (11)
  - Myalgia [Unknown]
  - Gout [Unknown]
  - Toe amputation [Unknown]
  - Peripheral swelling [Unknown]
  - Pleurisy [Unknown]
  - Muscle spasms [Unknown]
  - Skin cancer [Recovered/Resolved with Sequelae]
  - Fatigue [Unknown]
  - Osteomyelitis [Unknown]
  - Basal cell carcinoma [Unknown]
  - Inflammation [Unknown]

NARRATIVE: CASE EVENT DATE: 2015
